FAERS Safety Report 13665538 (Version 1)
Quarter: 2017Q2

REPORT INFORMATION
  Report Type: Spontaneous
  Country: US (occurrence: US)
  Receive Date: 20170619
  Receipt Date: 20170619
  Transmission Date: 20170830
  Serious: No
  Sender: FDA-Public Use
  Company Number: US-009507513-1706USA006214

PATIENT
  Age: 18 Year
  Sex: Female
  Weight: 55.78 kg

DRUGS (1)
  1. NEXPLANON [Suspect]
     Active Substance: ETONOGESTREL
     Indication: CONTRACEPTION
     Dosage: 3 YEARS IMPLANT, LEFT ARM
     Route: 059

REACTIONS (5)
  - Menstruation irregular [Unknown]
  - Pain in extremity [Unknown]
  - Menorrhagia [Unknown]
  - Mood swings [Unknown]
  - Dysmenorrhoea [Unknown]
